FAERS Safety Report 12694524 (Version 1)
Quarter: 2016Q3

REPORT INFORMATION
  Report Type: Spontaneous
  Country: FR (occurrence: FR)
  Receive Date: 20160829
  Receipt Date: 20160829
  Transmission Date: 20161109
  Serious: Yes (Life-Threatening, Hospitalization)
  Sender: FDA-Public Use
  Company Number: FR-PFIZER INC-2016399184

PATIENT
  Age: 47 Year
  Sex: Female

DRUGS (6)
  1. EFFEXOR LP [Suspect]
     Active Substance: VENLAFAXINE HYDROCHLORIDE
     Indication: MAJOR DEPRESSION
     Dosage: 225 MG, DAILY
     Route: 048
  2. SERESTA [Suspect]
     Active Substance: OXAZEPAM
     Indication: MAJOR DEPRESSION
     Dosage: 300 MG, DAILY
     Route: 048
  3. SERESTA [Suspect]
     Active Substance: OXAZEPAM
     Dosage: UNK
     Route: 048
     Dates: start: 20160703, end: 20160703
  4. EFFEXOR LP [Suspect]
     Active Substance: VENLAFAXINE HYDROCHLORIDE
     Dosage: UNK
     Route: 048
     Dates: start: 20160703, end: 20160703
  5. BACLOFEN. [Suspect]
     Active Substance: BACLOFEN
     Indication: HYPERPHAGIA
     Dosage: 120 MG, DAILY
     Route: 048
     Dates: start: 201601, end: 2016
  6. BACLOFEN. [Suspect]
     Active Substance: BACLOFEN
     Dosage: UNK
     Route: 048
     Dates: start: 20160703, end: 20160703

REACTIONS (10)
  - Rhabdomyolysis [Recovered/Resolved]
  - Hallucination, visual [Recovered/Resolved]
  - Withdrawal syndrome [Recovered/Resolved]
  - Depression [Recovering/Resolving]
  - Persecutory delusion [Recovered/Resolved]
  - Poisoning deliberate [Unknown]
  - Condition aggravated [Recovering/Resolving]
  - Suicide attempt [Unknown]
  - Intentional overdose [Unknown]
  - Electrocardiogram QT prolonged [Recovered/Resolved]

NARRATIVE: CASE EVENT DATE: 2016
